FAERS Safety Report 24410672 (Version 1)
Quarter: 2024Q4

REPORT INFORMATION
  Report Type: Spontaneous
  Country: US (occurrence: None)
  Receive Date: 20241007
  Receipt Date: 20241007
  Transmission Date: 20250115
  Serious: No
  Sender: Public
  Company Number: None

PATIENT
  Age: 9 Year
  Sex: Male

DRUGS (3)
  1. ADVATE [Suspect]
     Active Substance: ANTIHEMOPHILIC FACTOR, HUMAN RECOMBINANT
     Indication: Factor VIII deficiency
     Dosage: FREQUENCY : AS NEEDED;?STRENGHT: 500?
     Route: 042
     Dates: start: 202311
  2. ADVATE [Suspect]
     Active Substance: ANTIHEMOPHILIC FACTOR, HUMAN RECOMBINANT
     Indication: Factor VIII deficiency
     Dosage: FREQUENCY : AS NEEDED;?
     Route: 042
     Dates: start: 202311
  3. HEMLIBRA [Concomitant]
     Active Substance: EMICIZUMAB-KXWH

REACTIONS (3)
  - Suspected product quality issue [None]
  - Fall [None]
  - Neck injury [None]

NARRATIVE: CASE EVENT DATE: 20240927
